FAERS Safety Report 24570245 (Version 3)
Quarter: 2025Q3

REPORT INFORMATION
  Report Type: Spontaneous
  Country: JP (occurrence: JP)
  Receive Date: 20241031
  Receipt Date: 20250810
  Transmission Date: 20251020
  Serious: Yes (Life-Threatening, Other)
  Sender: ALEXION PHARMACEUTICALS
  Company Number: JP-ASTRAZENECA-240114365_063010_P_1

PATIENT
  Age: 33 Year
  Sex: Female

DRUGS (5)
  1. DAPAGLIFLOZIN [Suspect]
     Active Substance: DAPAGLIFLOZIN
  2. TRAZODONE HYDROCHLORIDE [Concomitant]
     Active Substance: TRAZODONE HYDROCHLORIDE
  3. RAMELTEON [Concomitant]
     Active Substance: RAMELTEON
  4. ESZOPICLONE [Concomitant]
     Active Substance: ESZOPICLONE
  5. ZALEPLON [Concomitant]
     Active Substance: ZALEPLON

REACTIONS (5)
  - Altered state of consciousness [Recovering/Resolving]
  - Overdose [Unknown]
  - Blood ketone body increased [Unknown]
  - Glucose urine present [Recovered/Resolved]
  - Off label use [Unknown]
